FAERS Safety Report 14709257 (Version 3)
Quarter: 2025Q3

REPORT INFORMATION
  Report Type: Spontaneous
  Country: EU (occurrence: EU)
  Receive Date: 20180403
  Receipt Date: 20250729
  Transmission Date: 20251021
  Serious: Yes (Death, Life-Threatening, Hospitalization, Other)
  Sender: MYLAN
  Company Number: EU-EMA-DD-20180213-NEGIEVPROD-093529

PATIENT
  Age: 77 Year
  Sex: Male
  Weight: 81 kg

DRUGS (13)
  1. RIFAMPIN [Interacting]
     Active Substance: RIFAMPIN
     Indication: Endocarditis staphylococcal
     Dosage: 600 MG, BID
  2. RIFAMPIN [Interacting]
     Active Substance: RIFAMPIN
     Indication: Endocarditis
     Dosage: 600 MILLIGRAM, BID
     Dates: start: 20160929, end: 20161012
  3. RIFAMPIN [Interacting]
     Active Substance: RIFAMPIN
     Indication: Staphylococcal infection
  4. CEFAZOLIN [Interacting]
     Active Substance: CEFAZOLIN
     Indication: Endocarditis staphylococcal
     Dosage: 6 G, QD
  5. CEFAZOLIN [Interacting]
     Active Substance: CEFAZOLIN
     Indication: Endocarditis
     Dosage: 2 GRAM, QD
     Dates: start: 20160929, end: 20161012
  6. CEFAZOLIN [Interacting]
     Active Substance: CEFAZOLIN
     Indication: Staphylococcal infection
  7. KARDEGIC [Interacting]
     Active Substance: ASPIRIN DL-LYSINE
     Indication: Thrombosis prophylaxis
     Dosage: 160 MILLIGRAM, QD
     Dates: start: 20160929, end: 20161017
  8. LOVENOX [Interacting]
     Active Substance: ENOXAPARIN SODIUM
     Indication: Thrombosis prophylaxis
     Dosage: 20000 INTERNATIONAL UNIT, QD
     Dates: start: 20161005, end: 20161005
  9. ESOMEPRAZOLE [Concomitant]
     Active Substance: ESOMEPRAZOLE
  10. DAFALGAN [Concomitant]
     Active Substance: ACETAMINOPHEN
  11. LEVOTHYROXINE [Concomitant]
     Active Substance: LEVOTHYROXINE
  12. TAHOR [Concomitant]
     Active Substance: ATORVASTATIN CALCIUM
  13. OXACILLIN [Concomitant]
     Active Substance: OXACILLIN SODIUM
     Indication: Staphylococcal infection

REACTIONS (7)
  - Shock haemorrhagic [Fatal]
  - Cardiogenic shock [Fatal]
  - Coagulopathy [Fatal]
  - Pericardial haemorrhage [Unknown]
  - Hypoprothrombinaemia [Unknown]
  - Hypovitaminosis [Unknown]
  - Drug interaction [Unknown]

NARRATIVE: CASE EVENT DATE: 20161003
